FAERS Safety Report 5329518-4 (Version None)
Quarter: 2007Q1

REPORT INFORMATION
  Report Type: 
  Country: None (occurrence: None)
  Receive Date: 20070223
  Receipt Date: 20060215
  Transmission Date: 20070707
  Serious: Yes (Hospitalization, Disabling)
  Sender: FDA-Public Use
  Company Number: WAES 0602USA05314

PATIENT
  Age: 52 Year
  Sex: Male
  Weight: 124.7392 kg

DRUGS (2)
  1. ZOCOR [Suspect]
     Indication: BLOOD CHOLESTEROL INCREASED
     Dosage: PO
     Route: 048
  2. VIOXX [Concomitant]

REACTIONS (1)
  - HEPATITIS [None]
